FAERS Safety Report 5717169-9 (Version None)
Quarter: 2008Q2

REPORT INFORMATION
  Report Type: 
  Country: None (occurrence: None)
  Receive Date: 20080423
  Receipt Date: 20080414
  Transmission Date: 20081010
  Serious: Yes (Hospitalization, Other)
  Sender: FDA-Public Use
  Company Number: TPA2008A00497

PATIENT
  Age: 69 Year
  Sex: Male
  Weight: 109 kg

DRUGS (13)
  1. ACTOS [Suspect]
     Indication: DIABETES MELLITUS
     Dosage: 45 MG, 1 IN 1 D, PER ORAL
     Route: 048
  2. LYRICA [Suspect]
     Indication: FORMICATION
     Dosage: 50 MG, 3 IN 1 D, PER ORAL
     Route: 048
  3. GLIMERIDE(ALL OTHER THERAPEUTIC PRODUCTS) [Concomitant]
  4. JANUVIA (ALL OTHER THERAPEUTIC PRODUCTS) [Concomitant]
  5. QUINAPRIL HCL [Concomitant]
  6. GLYSET (MIGLITOL) [Concomitant]
  7. METFORMIN HCL [Concomitant]
  8. CRESTOR [Concomitant]
  9. ASPIRIN [Concomitant]
  10. GLUCOSAMINE (GLUCOSAMINE) [Concomitant]
  11. FISH OIL (FISH OIL) [Concomitant]
  12. PRESSURE VISION(ALL OTHER THERAPEUTIC PRODUCTS) [Concomitant]
  13. SPECTRAVITE (ERGOCALCIFEROL, ASCORBIC ACID, FOLIC ACID, THIAMINE HYDRO [Concomitant]

REACTIONS (2)
  - DRUG INTERACTION [None]
  - PROCEDURAL PAIN [None]
